FAERS Safety Report 14295032 (Version 4)
Quarter: 2018Q3

REPORT INFORMATION
  Report Type: Report from Study
  Country: None (occurrence: CA)
  Receive Date: 20171218
  Receipt Date: 20180711
  Transmission Date: 20181010
  Serious: Yes (Other)
  Sender: FDA-Public Use
  Company Number: CA-ABBVIE-17K-028-2148751-00

PATIENT
  Sex: Female

DRUGS (2)
  1. HUMIRA [Suspect]
     Active Substance: ADALIMUMAB
     Route: 058
  2. HUMIRA [Suspect]
     Active Substance: ADALIMUMAB
     Indication: CROHN^S DISEASE
     Route: 058
     Dates: start: 20170403

REACTIONS (15)
  - Rash pruritic [Not Recovered/Not Resolved]
  - Skin cancer [Not Recovered/Not Resolved]
  - Skin discolouration [Not Recovered/Not Resolved]
  - Dry skin [Unknown]
  - Skin discolouration [Not Recovered/Not Resolved]
  - Scratch [Not Recovered/Not Resolved]
  - Hypersensitivity [Not Recovered/Not Resolved]
  - Eczema [Not Recovered/Not Resolved]
  - Rash pruritic [Not Recovered/Not Resolved]
  - Psoriasis [Not Recovered/Not Resolved]
  - Lichen planus [Not Recovered/Not Resolved]
  - Rash papular [Not Recovered/Not Resolved]
  - Injection site pruritus [Not Recovered/Not Resolved]
  - Rash papular [Not Recovered/Not Resolved]
  - Injection site rash [Not Recovered/Not Resolved]

NARRATIVE: CASE EVENT DATE: 2017
